FAERS Safety Report 7290521-9 (Version None)
Quarter: 2011Q1

REPORT INFORMATION
  Report Type: 
  Country: None (occurrence: None)
  Receive Date: 20110214
  Receipt Date: 20110209
  Transmission Date: 20110831
  Serious: No
  Sender: FDA-Public Use
  Company Number: US-PFIZER INC-2011029939

PATIENT
  Age: 38 Year
  Sex: Male

DRUGS (3)
  1. PRISTIQ [Suspect]
     Indication: PAIN
     Dosage: UNK
  2. PRISTIQ [Interacting]
     Indication: DEPRESSION
  3. WARFARIN SODIUM [Interacting]
     Dosage: UNK

REACTIONS (2)
  - DEPRESSION [None]
  - DRUG INTERACTION [None]
